FAERS Safety Report 5936139-9 (Version None)
Quarter: 2008Q4

REPORT INFORMATION
  Report Type: 
  Country: None (occurrence: None)
  Receive Date: 20081030
  Receipt Date: 20081024
  Transmission Date: 20090506
  Serious: Yes (Other)
  Sender: FDA-Public Use
  Company Number: DE-AMGEN-UK304461

PATIENT
  Age: 72 Year
  Sex: Female
  Weight: 67 kg

DRUGS (13)
  1. ARANESP [Suspect]
     Indication: DRUG USE FOR UNKNOWN INDICATION
     Route: 058
     Dates: start: 20080708, end: 20080801
  2. TAXOL [Concomitant]
     Dates: start: 20080516
  3. CARBOPLATIN [Concomitant]
     Dates: start: 20080516
  4. RANITIDINE HCL [Concomitant]
     Route: 042
     Dates: start: 20080516
  5. NEULASTA [Concomitant]
     Route: 058
     Dates: start: 20080517
  6. METOPROLOL TARTRATE [Concomitant]
  7. PANTOZOL [Concomitant]
  8. TOREM [Concomitant]
  9. FERRO SANOL DUODENAL [Concomitant]
  10. FUROSEMID [Concomitant]
  11. GRANISETRON [Concomitant]
     Route: 042
  12. VITAMIN B1 TAB [Concomitant]
     Route: 065
  13. PYRIDOXINE HYDROCHLORIDE [Concomitant]

REACTIONS (3)
  - ERYTHEMA [None]
  - PRURITUS [None]
  - URTICARIA [None]
